FAERS Safety Report 7877456-5 (Version None)
Quarter: 2011Q4

REPORT INFORMATION
  Report Type: 
  Country: None (occurrence: None)
  Receive Date: 20111031
  Receipt Date: 20111026
  Transmission Date: 20120403
  Serious: Yes (Death)
  Sender: FDA-Public Use
  Company Number: VE-PFIZER INC-2011262224

PATIENT
  Age: 10 Day
  Sex: Female

DRUGS (1)
  1. PROSTIN VR PEDIATRIC [Suspect]
     Indication: HEART DISEASE CONGENITAL
     Dosage: UNK
     Dates: start: 20111017

REACTIONS (1)
  - DEATH [None]
